FAERS Safety Report 8844538 (Version 1)
Quarter: 2012Q4

REPORT INFORMATION
  Report Type: 
  Country: US (occurrence: US)
  Receive Date: 20121017
  Receipt Date: 20121017
  Transmission Date: 20130627
  Serious: No
  Sender: FDA-Public Use
  Company Number: US-BAUSCH-BL-2012-000968

PATIENT
  Sex: Female

DRUGS (2)
  1. LATANOPROST OPHTHALMIC SOLUTION 0.005% [Suspect]
     Indication: GLAUCOMA
     Dosage: 1 drop in each eye, at bedtime
     Route: 047
     Dates: start: 201104, end: 201201
  2. POLYVINYL ALCOHOL [Concomitant]

REACTIONS (6)
  - Dry eye [Recovered/Resolved]
  - Visual acuity reduced [Not Recovered/Not Resolved]
  - Blepharal pigmentation [Not Recovered/Not Resolved]
  - Ocular hyperaemia [Recovered/Resolved]
  - Eye pain [Recovered/Resolved]
  - Eyelid function disorder [Recovered/Resolved]
